FAERS Safety Report 4471893-7 (Version None)
Quarter: 2004Q4

REPORT INFORMATION
  Report Type: 
  Country: None (occurrence: None)
  Receive Date: 20041007
  Receipt Date: 20040923
  Transmission Date: 20050328
  Serious: Yes (Other)
  Sender: FDA-Public Use
  Company Number: US013734

PATIENT
  Age: 82 Year
  Sex: Male

DRUGS (16)
  1. PROVIGIL [Suspect]
     Indication: NARCOLEPSY
     Dosage: 200 MG BID ORAL
     Route: 048
     Dates: start: 20010101
  2. AVANDIA [Concomitant]
  3. LASIX [Concomitant]
  4. CALCORT [Concomitant]
  5. LEXAPRO [Concomitant]
  6. ZYLOPRIM [Concomitant]
  7. LASILACTON [Concomitant]
  8. DIGOXINA [Concomitant]
  9. MENAXOL [Concomitant]
  10. NEUROBION [Concomitant]
  11. NEXIUM [Concomitant]
  12. LIPITOR [Concomitant]
  13. COMBIVENT [Concomitant]
  14. RECORMON [Concomitant]
  15. KIADON [Concomitant]
  16. BRONKLAST (BUDESONIDA MICRONIZADA) [Concomitant]

REACTIONS (3)
  - DYSPNOEA [None]
  - FATIGUE [None]
  - HAEMOGLOBIN DECREASED [None]
